FAERS Safety Report 4566484-3 (Version None)
Quarter: 2005Q1

REPORT INFORMATION
  Report Type: 
  Country: None (occurrence: None)
  Receive Date: 20050128
  Receipt Date: 20050121
  Transmission Date: 20050727
  Serious: Yes (Hospitalization, Other)
  Sender: FDA-Public Use
  Company Number: KII-2005-0014855

PATIENT
  Age: 27 Year
  Sex: Male

DRUGS (4)
  1. OXYCONTIN [Suspect]
     Dosage: SEE TEXT INTRAVENOUS
     Route: 042
  2. COCAINE (COCAINE) [Suspect]
     Dosage: INTRAVENOUS
     Route: 042
  3. METHYLPHENIDATE HCL [Suspect]
     Dosage: SEE TEXT INTRAVENOUS
     Route: 042
  4. ACETAMINOPHEN AND OXYCODONE HCL [Suspect]
     Dosage: SEE TEXT INTRAVENOUS
     Route: 042

REACTIONS (15)
  - AGITATION [None]
  - BILE DUCT OBSTRUCTION [None]
  - BLOOD PRESSURE DIASTOLIC DECREASED [None]
  - CHOLECYSTITIS INFECTIVE [None]
  - DEHYDRATION [None]
  - DRY SKIN [None]
  - DYSKINESIA [None]
  - HYPERPYREXIA [None]
  - LETHARGY [None]
  - LIVER FUNCTION TEST ABNORMAL [None]
  - MUSCLE TWITCHING [None]
  - PAIN [None]
  - POLYSUBSTANCE ABUSE [None]
  - TACHYCARDIA [None]
  - VOMITING [None]
